FAERS Safety Report 16741539 (Version 1)
Quarter: 2019Q3

REPORT INFORMATION
  Report Type: Report from Study
  Country: US (occurrence: US)
  Receive Date: 20190826
  Receipt Date: 20190826
  Transmission Date: 20191005
  Serious: No
  Sender: FDA-Public Use
  Company Number: PHEH2019US034984

PATIENT
  Age: 10 Year
  Sex: Female

DRUGS (1)
  1. OMNITROPE [Suspect]
     Active Substance: SOMATROPIN
     Indication: TURNER^S SYNDROME
     Dosage: 1.6 MG, QD
     Route: 058
     Dates: start: 20190817, end: 20190821

REACTIONS (3)
  - Fatigue [Unknown]
  - Incorrect route of product administration [Unknown]
  - Eye contusion [Unknown]

NARRATIVE: CASE EVENT DATE: 20190817
